FAERS Safety Report 5358893-X (Version None)
Quarter: 2007Q2

REPORT INFORMATION
  Report Type: 
  Country: None (occurrence: None)
  Receive Date: 20070615
  Receipt Date: 20070612
  Transmission Date: 20071010
  Serious: Yes (Other)
  Sender: FDA-Public Use
  Company Number: A0655261A

PATIENT
  Sex: Male

DRUGS (3)
  1. ADVAIR DISKUS 100/50 [Suspect]
     Indication: CHRONIC OBSTRUCTIVE PULMONARY DISEASE
     Route: 055
     Dates: start: 20040101, end: 20060801
  2. DARVOCET [Concomitant]
  3. MORPHINE [Concomitant]

REACTIONS (3)
  - BRONCHOPNEUMONIA [None]
  - DRUG INEFFECTIVE [None]
  - OSTEOPOROSIS [None]
